FAERS Safety Report 8760096 (Version 1)
Quarter: 2012Q4

REPORT INFORMATION
  Report Type: Spontaneous
  Country: US (occurrence: None)
  Receive Date: 20120829
  Receipt Date: 20120829
  Transmission Date: 20130627
  Serious: Yes (Hospitalization)
  Sender: FDA-Public Use
  Company Number: None

PATIENT
  Age: 32 Year
  Sex: Female
  Weight: 59.88 kg

DRUGS (1)
  1. MICROGESTIN [Suspect]
     Indication: BIRTH CONTROL
     Dates: start: 20110520, end: 20120717

REACTIONS (1)
  - Pulmonary embolism [None]
